FAERS Safety Report 11896360 (Version 1)
Quarter: 2016Q1

REPORT INFORMATION
  Report Type: Spontaneous
  Country: US (occurrence: US)
  Receive Date: 20160107
  Receipt Date: 20160107
  Transmission Date: 20160526
  Serious: Yes (Death)
  Sender: FDA-Public Use
  Company Number: US-JNJFOC-20160102272

PATIENT
  Sex: Male

DRUGS (1)
  1. HALDOL [Suspect]
     Active Substance: HALOPERIDOL
     Indication: PRODUCT USED FOR UNKNOWN INDICATION
     Route: 042

REACTIONS (6)
  - Pneumonia aspiration [Fatal]
  - Myocardial infarction [Fatal]
  - Off label use [Unknown]
  - Parkinson^s disease [Fatal]
  - Contraindication to medical treatment [Unknown]
  - Incorrect route of drug administration [Unknown]
